FAERS Safety Report 11369941 (Version 1)
Quarter: 2015Q3

REPORT INFORMATION
  Report Type: Spontaneous
  Country: US (occurrence: US)
  Receive Date: 20150812
  Receipt Date: 20150812
  Transmission Date: 20151125
  Serious: Yes (Other)
  Sender: FDA-Public Use
  Company Number: US-JNJFOC-20150601760

PATIENT
  Sex: Male
  Weight: 83.01 kg

DRUGS (3)
  1. INVOKAMET [Suspect]
     Active Substance: CANAGLIFLOZIN\METFORMIN HYDROCHLORIDE
     Indication: TYPE 2 DIABETES MELLITUS
     Dosage: 150/500MG
     Route: 048
  2. INVOKAMET [Suspect]
     Active Substance: CANAGLIFLOZIN\METFORMIN HYDROCHLORIDE
     Indication: TYPE 2 DIABETES MELLITUS
     Dosage: 150/1000MG
     Route: 048
     Dates: start: 201503
  3. ASPIRIN. [Concomitant]
     Active Substance: ASPIRIN
     Indication: ERECTILE DYSFUNCTION
     Route: 065
     Dates: start: 20150530

REACTIONS (2)
  - Diarrhoea [Recovering/Resolving]
  - Glycosylated haemoglobin increased [Not Recovered/Not Resolved]

NARRATIVE: CASE EVENT DATE: 2015
